FAERS Safety Report 6759987-4 (Version None)
Quarter: 2010Q2

REPORT INFORMATION
  Report Type: 
  Country: None (occurrence: None)
  Receive Date: 20100604
  Receipt Date: 20100525
  Transmission Date: 20101027
  Serious: Yes (Other)
  Sender: FDA-Public Use
  Company Number: 100419

PATIENT
  Age: 55 Year
  Sex: Male

DRUGS (1)
  1. LEUCOVORIN CALCIUM [Suspect]
     Indication: ADENOCARCINOMA
     Dosage: 400MG/M2 OVER 2HOURS DAY 1

REACTIONS (6)
  - CONJUNCTIVITIS [None]
  - GINGIVAL BLEEDING [None]
  - NAUSEA [None]
  - NEUROPATHY PERIPHERAL [None]
  - PALMAR-PLANTAR ERYTHRODYSAESTHESIA SYNDROME [None]
  - VOMITING [None]
